FAERS Safety Report 5461099-7 (Version None)
Quarter: 2007Q3

REPORT INFORMATION
  Report Type: 
  Country: None (occurrence: None)
  Receive Date: 20070920
  Receipt Date: 20070917
  Transmission Date: 20080115
  Serious: Yes (Hospitalization)
  Sender: FDA-Public Use
  Company Number: FR-RB-007990-07

PATIENT
  Age: 41 Year
  Sex: Female

DRUGS (1)
  1. SUBUTEX [Suspect]
     Dosage: UNKNOWN DOSAGE.
     Route: 042

REACTIONS (2)
  - INTENTIONAL DRUG MISUSE [None]
  - INTERVERTEBRAL DISCITIS [None]
